FAERS Safety Report 7265682-8 (Version None)
Quarter: 2011Q1

REPORT INFORMATION
  Report Type: 
  Country: None (occurrence: None)
  Receive Date: 20110131
  Receipt Date: 20110125
  Transmission Date: 20110831
  Serious: Yes (Hospitalization)
  Sender: FDA-Public Use
  Company Number: US-MERCK-1101USA03273

PATIENT
  Age: 44 Year
  Sex: Female

DRUGS (6)
  1. CYCLOPHOSPHAMIDE [Concomitant]
     Route: 065
  2. EMEND [Suspect]
     Route: 048
     Dates: start: 20061201
  3. PROCHLORPERAZINE EDISYLATE [Concomitant]
     Route: 065
  4. NEULASTA [Suspect]
     Indication: CHEMOTHERAPY
     Route: 058
     Dates: start: 20061209, end: 20061209
  5. LORAZEPAM [Concomitant]
     Route: 065
  6. DOXORUBICIN HYDROCHLORIDE [Concomitant]
     Route: 065

REACTIONS (6)
  - HYPERSENSITIVITY [None]
  - URTICARIA [None]
  - ANAPHYLACTIC SHOCK [None]
  - SWOLLEN TONGUE [None]
  - LIP SWELLING [None]
  - DYSPNOEA [None]
